FAERS Safety Report 14150667 (Version 2)
Quarter: 2017Q4

REPORT INFORMATION
  Report Type: Report from Study
  Country: None (occurrence: ES)
  Receive Date: 20171101
  Receipt Date: 20171120
  Transmission Date: 20180321
  Serious: Yes (Hospitalization)
  Sender: FDA-Public Use
  Company Number: ES-ABBVIE-17K-144-2143851-00

PATIENT
  Sex: Male
  Weight: 80 kg

DRUGS (3)
  1. DUODOPA [Suspect]
     Active Substance: CARBIDOPA\LEVODOPA
     Indication: PARKINSON^S DISEASE
     Route: 050
     Dates: start: 20110920
  2. DUODOPA [Suspect]
     Active Substance: CARBIDOPA\LEVODOPA
     Dosage: DOSE CONTINUOUS 5?DOSE EXTRA 5
     Route: 050
     Dates: end: 20171115
  3. DUODOPA [Suspect]
     Active Substance: CARBIDOPA\LEVODOPA
     Dosage: DOSE CONTINUOUS 4.5?DOSE EXTRA 4
     Route: 050
     Dates: start: 20171115

REACTIONS (11)
  - Granuloma [Recovering/Resolving]
  - Cognitive disorder [Unknown]
  - Hallucination [Unknown]
  - Stoma site discharge [Recovering/Resolving]
  - Discomfort [Unknown]
  - Asthenia [Unknown]
  - Vomiting projectile [Recovered/Resolved]
  - Electrolyte depletion [Recovered/Resolved]
  - Aggression [Unknown]
  - Stoma site infection [Recovering/Resolving]
  - Weight decreased [Recovering/Resolving]

NARRATIVE: CASE EVENT DATE: 2017
